FAERS Safety Report 5794451-0 (Version None)
Quarter: 2008Q2

REPORT INFORMATION
  Report Type: 
  Country: None (occurrence: None)
  Receive Date: 20080630
  Receipt Date: 20080620
  Transmission Date: 20081010
  Serious: Yes (Hospitalization, Other)
  Sender: FDA-Public Use
  Company Number: NZ-JNJFOC-20080604533

PATIENT
  Age: 22 Year
  Sex: Female

DRUGS (3)
  1. REMICADE [Suspect]
     Route: 042
  2. REMICADE [Suspect]
     Indication: ARTHRITIS
     Dosage: APPROXIMATELY 2 YEARS
     Route: 042
  3. METHYLPREDNISOLONE [Concomitant]
     Indication: PREMEDICATION

REACTIONS (8)
  - ARTHRALGIA [None]
  - HEADACHE [None]
  - INFLUENZA LIKE ILLNESS [None]
  - INFUSION RELATED REACTION [None]
  - MALAISE [None]
  - PRURITUS [None]
  - PYREXIA [None]
  - TACHYCARDIA [None]
